FAERS Safety Report 6759084-8 (Version None)
Quarter: 2010Q2

REPORT INFORMATION
  Report Type: 
  Country: None (occurrence: None)
  Receive Date: 20100607
  Receipt Date: 20100601
  Transmission Date: 20101027
  Serious: Yes (Hospitalization)
  Sender: FDA-Public Use
  Company Number: US-BAYER-201016122BCC

PATIENT
  Age: 63 Year
  Sex: Male
  Weight: 67 kg

DRUGS (6)
  1. ASPIRIN [Suspect]
     Indication: DRUG USE FOR UNKNOWN INDICATION
     Dosage: EVERY DAY
     Route: 065
     Dates: end: 20100401
  2. SUTENT [Suspect]
     Indication: NON-SMALL CELL LUNG CANCER METASTATIC
     Dosage: TOTAL DAILY DOSE: 37.5 MG  UNIT DOSE: 37.5 MG
     Route: 048
     Dates: start: 20100323, end: 20100418
  3. PEMETREXED [Suspect]
     Indication: NON-SMALL CELL LUNG CANCER METASTATIC
     Dosage: 500MG/M2 OVER 10 MIN ON DAY 1
     Route: 042
     Dates: start: 20100323, end: 20100413
  4. MS CONTIN [Suspect]
     Indication: DRUG USE FOR UNKNOWN INDICATION
     Route: 065
  5. REGLAN [Concomitant]
     Route: 065
  6. ROXICET [Concomitant]
     Route: 065

REACTIONS (6)
  - HAEMATEMESIS [None]
  - HYPOKALAEMIA [None]
  - NAUSEA [None]
  - OESOPHAGITIS [None]
  - UPPER GASTROINTESTINAL HAEMORRHAGE [None]
  - VOMITING [None]
